APPROVED DRUG PRODUCT: NORETHINDRONE ACETATE AND ETHINYL ESTRADIOL AND ETHINYL ESTRADIOL AND FERROUS FUMARATE
Active Ingredient: ETHINYL ESTRADIOL; NORETHINDRONE ACETATE
Strength: 0.01MG,0.01MG;1MG,N/A
Dosage Form/Route: TABLET;ORAL
Application: A205049 | Product #001
Applicant: XIROMED LLC
Approved: May 31, 2016 | RLD: No | RS: No | Type: DISCN